FAERS Safety Report 4760973-4 (Version None)
Quarter: 2005Q3

REPORT INFORMATION
  Report Type: 
  Country: None (occurrence: None)
  Receive Date: 20050901
  Receipt Date: 20050802
  Transmission Date: 20060218
  Serious: No
  Sender: FDA-Public Use
  Company Number: 1692

PATIENT
  Age: 41 Year
  Sex: Female
  Weight: 47.6277 kg

DRUGS (10)
  1. AMNESTEEM [Suspect]
     Indication: ACNE
     Dosage: 40MG, QD, QOD; 80MG, QOD, PO
     Route: 048
     Dates: start: 20050402, end: 20050703
  2. BUPROPION HCL [Concomitant]
  3. SUMATRIPTAN SUCCINATE [Concomitant]
  4. AMITRIPTYLINE HCL [Concomitant]
  5. OXAZEPAM [Concomitant]
  6. METHYLTESTOSTERONE/ESTROGENS ESTERIFIED [Concomitant]
  7. CLONAZEPAM [Concomitant]
  8. BOTULINUM TOXIN TYPE A [Concomitant]
  9. METOCLOPRAMIDE HCL [Concomitant]
  10. PARACETAMOL/OXYCODONE HCL [Concomitant]

REACTIONS (9)
  - ANOREXIA [None]
  - ARTHRALGIA [None]
  - CONDITION AGGRAVATED [None]
  - CONVULSION [None]
  - DEPRESSION [None]
  - HYPOAESTHESIA [None]
  - MIGRAINE [None]
  - SUICIDAL IDEATION [None]
  - WEIGHT DECREASED [None]
